FAERS Safety Report 10144837 (Version 1)
Quarter: 2014Q2

REPORT INFORMATION
  Report Type: Spontaneous
  Country: US (occurrence: US)
  Receive Date: 20140430
  Receipt Date: 20140430
  Transmission Date: 20141212
  Serious: Yes (Hospitalization)
  Sender: FDA-Public Use
  Company Number: US-SA-2014SA011535

PATIENT
  Age: 85 Year
  Sex: Female

DRUGS (1)
  1. LOVENOX [Suspect]
     Route: 065

REACTIONS (7)
  - Wound haematoma [Not Recovered/Not Resolved]
  - Oedema peripheral [Not Recovered/Not Resolved]
  - Prothrombin level increased [Not Recovered/Not Resolved]
  - Erythema [Not Recovered/Not Resolved]
  - Suture related complication [Not Recovered/Not Resolved]
  - Bloody discharge [Not Recovered/Not Resolved]
  - Overdose [Unknown]
